FAERS Safety Report 11663523 (Version 18)
Quarter: 2016Q4

REPORT INFORMATION
  Report Type: Report from Study
  Country: CA (occurrence: CA)
  Receive Date: 20151027
  Receipt Date: 20161216
  Transmission Date: 20170206
  Serious: Yes (Other)
  Sender: FDA-Public Use
  Company Number: CA-ROCHE-1649929

PATIENT
  Age: 41 Year
  Sex: Female
  Weight: 91 kg

DRUGS (6)
  1. PREDNISONE. [Concomitant]
     Active Substance: PREDNISONE
  2. TRAMADOL. [Concomitant]
     Active Substance: TRAMADOL
     Dosage: EACH NIGHT
     Route: 065
  3. SYNTHROID [Concomitant]
     Active Substance: LEVOTHYROXINE SODIUM
  4. ACTEMRA [Suspect]
     Active Substance: TOCILIZUMAB
     Indication: RHEUMATOID ARTHRITIS
     Route: 042
     Dates: start: 20150924
  5. TYLENOL WITH CODEINE [Concomitant]
     Active Substance: ACETAMINOPHEN\CODEINE PHOSPHATE
  6. NAPROXEN. [Concomitant]
     Active Substance: NAPROXEN

REACTIONS (21)
  - Oxygen saturation decreased [Unknown]
  - Poor venous access [Unknown]
  - Nasopharyngitis [Unknown]
  - Nasopharyngitis [Not Recovered/Not Resolved]
  - Rales [Unknown]
  - Lethargy [Unknown]
  - Heart rate decreased [Unknown]
  - Wound infection [Recovered/Resolved]
  - Drug ineffective [Unknown]
  - Weight increased [Unknown]
  - Nasal congestion [Unknown]
  - Gastroenteritis viral [Recovered/Resolved]
  - Rhinorrhoea [Unknown]
  - Cough [Unknown]
  - Laceration [Unknown]
  - Sinusitis [Not Recovered/Not Resolved]
  - Heart rate increased [Unknown]
  - Rash [Not Recovered/Not Resolved]
  - Headache [Unknown]
  - Rheumatoid arthritis [Unknown]
  - Blood pressure decreased [Unknown]

NARRATIVE: CASE EVENT DATE: 201510
